FAERS Safety Report 17907254 (Version 1)
Quarter: 2020Q2

REPORT INFORMATION
  Report Type: Spontaneous
  Country: DE (occurrence: DE)
  Receive Date: 20200617
  Receipt Date: 20200617
  Transmission Date: 20200714
  Serious: Yes (Life-Threatening, Hospitalization)
  Sender: FDA-Public Use
  Company Number: DE-009507513-2006DEU004975

PATIENT
  Age: 80 Year
  Sex: Female

DRUGS (13)
  1. CANDESARTAN. [Concomitant]
     Active Substance: CANDESARTAN
     Dosage: 16 MG, ONE IN THE MORNING, ONE IN THE EVENING (1-0-1-0), TABLET
     Route: 048
  2. HYDROMORPHONE [Suspect]
     Active Substance: HYDROMORPHONE
     Dosage: 4 MG, ONE IN THE MORNING, ONE IN THE EVENING (1-0-1-0), CAPSULES
     Route: 048
  3. AMLODIPINE [Concomitant]
     Active Substance: AMLODIPINE BESYLATE
     Dosage: 5 MG, ONE IN THE MIDDLE OF THE DAY, A FINAL DOSE BEFORE BED (0-1-0-1), TABLET
     Route: 048
  4. CLOPIDOGREL [Concomitant]
     Active Substance: CLOPIDOGREL BISULFATE
     Dosage: 75 MG, ONE IN THE MORNING (1-0-0-0), TABLET
     Route: 048
  5. XELEVIA [Suspect]
     Active Substance: SITAGLIPTIN PHOSPHATE
     Dosage: 100 MG, ONE IN THE MORNING (1-0-0-0), TABLET
     Route: 048
  6. TRIMINEURIN [Suspect]
     Active Substance: TRIMIPRAMINE MALEATE
     Dosage: 5 IN THE MORNING (5-0-0-0), DROPS
     Route: 048
  7. PANTOPRAZOLE [Concomitant]
     Active Substance: PANTOPRAZOLE
     Dosage: 20 MG, ONE IN THE MORNING, ONE IN THE EVENING (1-0-1-0), TABLET
     Route: 048
  8. ATORVASTATIN [Concomitant]
     Active Substance: ATORVASTATIN
     Dosage: 20 MG, ONE IN THE EVENING (0-0-1-0), TABLET
     Route: 048
  9. VITAMIN D (UNSPECIFIED) [Concomitant]
     Active Substance: VITAMIN D NOS
     Dosage: 1000 IE, ONE IN THE MORNING (1-0-0-0), TABLET
     Route: 048
  10. ACC (ACETYLCYSTEINE) [Concomitant]
     Active Substance: ACETYLCYSTEINE
     Dosage: 600 MG, ONE IN THE MORNING (1-0-0-0), EFFERVESCENT TABLET
     Route: 048
  11. VIANI DISKUS [Concomitant]
     Active Substance: FLUTICASONE PROPIONATE\SALMETEROL XINAFOATE
     Dosage: 50/500 ?G, ONE IN THE MORNING, ONE IN THE EVENING (1-0-1-0), METERED DOSE INHALER
     Route: 055
  12. DIPYRONE [Concomitant]
     Active Substance: DIPYRONE
     Dosage: 500 MG, ONE IN THE MORNING, ONE IN THE MIDDLE OF THE DAY, ONE IN THE EVENING, A FINAL DOSE BEFORE BE
     Route: 048
  13. LEVOTHYROXINE SODIUM. [Concomitant]
     Active Substance: LEVOTHYROXINE SODIUM
     Dosage: 75 ?G, ONE IN THE MORNING (1-0-0-0), TABLET
     Route: 048

REACTIONS (5)
  - General physical health deterioration [Unknown]
  - Abdominal pain upper [Unknown]
  - Constipation [Unknown]
  - Abdominal distension [Unknown]
  - Abdominal pain [Unknown]
